FAERS Safety Report 19094904 (Version 1)
Quarter: 2021Q2

REPORT INFORMATION
  Report Type: Other
  Country: FR (occurrence: FR)
  Receive Date: 20210405
  Receipt Date: 20210405
  Transmission Date: 20210717
  Serious: Yes (Hospitalization, Other)
  Sender: FDA-Public Use
  Company Number: FR-VALIDUS PHARMACEUTICALS LLC-FR-2021VAL000561

PATIENT
  Age: 63 Year
  Sex: Male
  Weight: 85.3 kg

DRUGS (9)
  1. ERGOCALCIFEROL. [Suspect]
     Active Substance: ERGOCALCIFEROL
     Indication: VITAMIN D DEFICIENCY
     Dosage: 1 DF, Q3M
     Route: 048
     Dates: start: 20180227, end: 20180903
  2. PRINCI B1+B6 [Suspect]
     Active Substance: PYRIDOXINE\THIAMINE
     Indication: ALCOHOL WITHDRAWAL SYNDROME
     Dosage: 3 DF, QD
     Route: 048
     Dates: start: 20171214, end: 20180903
  3. CALCIUM CARBONATE. [Suspect]
     Active Substance: CALCIUM CARBONATE
     Indication: HYPOVITAMINOSIS
     Dosage: 2 DF, QD
     Route: 048
     Dates: start: 20180430, end: 20180903
  4. MIRTAZAPINE. [Suspect]
     Active Substance: MIRTAZAPINE
     Indication: DEPRESSION
     Dosage: 15 MG, BID
     Route: 048
     Dates: start: 20180817, end: 20180903
  5. DIAZEPAM. [Suspect]
     Active Substance: DIAZEPAM
     Indication: SEIZURE
     Dosage: 1 IN THE MORNING, 2 IN THE EVENING IF CONVULSION
     Route: 054
     Dates: start: 20171214, end: 20180903
  6. CITALOPRAM HYDROBROMIDE. [Suspect]
     Active Substance: CITALOPRAM HYDROBROMIDE
     Indication: DEPRESSION
     Dosage: 2 IN THE MORNING
     Route: 048
     Dates: start: 20171214, end: 20180817
  7. PARACETAMOL [Suspect]
     Active Substance: ACETAMINOPHEN
     Indication: PYREXIA
     Dosage: 4 G, QD
     Route: 042
     Dates: start: 20180903, end: 20180905
  8. LEVETIRACETAM. [Suspect]
     Active Substance: LEVETIRACETAM
     Indication: EPILEPSY
     Dosage: 1 MORNING AND EVENING
     Route: 048
     Dates: start: 20180614, end: 20180904
  9. RANITIDINE HYDROCHLORIDE. [Suspect]
     Active Substance: RANITIDINE HYDROCHLORIDE
     Indication: GASTRODUODENAL ULCER
     Dosage: 2 IN THE MORNING
     Route: 042
     Dates: start: 20180903, end: 20180905

REACTIONS (2)
  - Hepatic cytolysis [Recovering/Resolving]
  - Cholestasis [Recovering/Resolving]

NARRATIVE: CASE EVENT DATE: 20180904
